FAERS Safety Report 13104847 (Version 16)
Quarter: 2020Q4

REPORT INFORMATION
  Report Type: Spontaneous
  Country: US (occurrence: US)
  Receive Date: 20170111
  Receipt Date: 20201106
  Transmission Date: 20210113
  Serious: No
  Sender: FDA-Public Use
  Company Number: US-PFIZER INC-2017010084

PATIENT
  Age: 60 Year
  Sex: Female
  Weight: 87 kg

DRUGS (7)
  1. PREVACID [Concomitant]
     Active Substance: LANSOPRAZOLE
     Indication: GASTROOESOPHAGEAL REFLUX DISEASE
     Dosage: 15 MG, DAILY
  2. EFFEXOR XR [Suspect]
     Active Substance: VENLAFAXINE HYDROCHLORIDE
     Indication: DEPRESSION
     Dosage: 300 MG (2 CAPS OF 150MG), 1X/DAY
     Route: 048
     Dates: start: 20190320
  3. EFFEXOR XR [Suspect]
     Active Substance: VENLAFAXINE HYDROCHLORIDE
     Indication: ANXIETY
     Dosage: 300 MG (2 CAPS OF 150MG), 1X/DAY
     Route: 048
     Dates: start: 2010
  4. EFFEXOR XR [Suspect]
     Active Substance: VENLAFAXINE HYDROCHLORIDE
     Dosage: 300 MG, DAILY (150 MG, 2 BY MOUTH DAILY)
     Route: 048
  5. EFFEXOR XR [Suspect]
     Active Substance: VENLAFAXINE HYDROCHLORIDE
     Dosage: 300 MG, DAILY (TWO  OF 150MG PO DAILY)
     Route: 048
  6. EFFEXOR XR [Suspect]
     Active Substance: VENLAFAXINE HYDROCHLORIDE
     Dosage: 300 MG, DAILY (300 MG ONCE DAILY BY MOUTH)
     Route: 048
  7. XANAX [Concomitant]
     Active Substance: ALPRAZOLAM
     Indication: ANXIETY
     Dosage: 1 MG, 1X/DAY (NIGHTLY)

REACTIONS (13)
  - Prescribed overdose [Unknown]
  - Tremor [Unknown]
  - Product dose omission in error [Unknown]
  - Neck pain [Unknown]
  - Fatigue [Unknown]
  - Chills [Recovered/Resolved]
  - Viral infection [Unknown]
  - Head discomfort [Unknown]
  - Nightmare [Unknown]
  - Cough [Recovering/Resolving]
  - Pain [Recovered/Resolved]
  - Headache [Unknown]
  - Reflexes abnormal [Unknown]

NARRATIVE: CASE EVENT DATE: 201612
